FAERS Safety Report 7902871-0 (Version None)
Quarter: 2011Q4

REPORT INFORMATION
  Report Type: 
  Country: None (occurrence: None)
  Receive Date: 20111107
  Receipt Date: 20111025
  Transmission Date: 20120403
  Serious: Yes (Hospitalization)
  Sender: FDA-Public Use
  Company Number: KR-006672

PATIENT
  Sex: Male
  Weight: 58.2 kg

DRUGS (13)
  1. ATORVASTATIN CALCIUM [Concomitant]
  2. HYDROXYCHLOROQUINE SULFATE [Concomitant]
  3. FOLIC ACID [Concomitant]
  4. SULFASALAZINE [Concomitant]
  5. PANTOPRAZOLE SODIUM SESQUIHYDRATE [Concomitant]
  6. EPROSARTAN [Concomitant]
  7. ADCAL /00056901/ [Concomitant]
  8. DOXAZIN /00639301/ [Concomitant]
  9. SODIUM CHLORIDE [Concomitant]
  10. DEGARELIX (DEGARELIX) (240 MG, 80 MG) [Suspect]
     Indication: PROSTATE CANCER
     Dosage: (240 MG 1X SUBCUTANEOUS), (80 MG 1X/MONTH SUBCUTANEOUS)
     Route: 058
     Dates: start: 20110411, end: 20110411
  11. DEGARELIX (DEGARELIX) (240 MG, 80 MG) [Suspect]
     Indication: PROSTATE CANCER
     Dosage: (240 MG 1X SUBCUTANEOUS), (80 MG 1X/MONTH SUBCUTANEOUS)
     Route: 058
     Dates: start: 20110512
  12. CLOPIDOGREL BISULFATE [Concomitant]
  13. PROPIVERINE [Concomitant]

REACTIONS (3)
  - ATRIAL FIBRILLATION [None]
  - PALLOR [None]
  - BLOOD PRESSURE DECREASED [None]
